FAERS Safety Report 4795161-9 (Version None)
Quarter: 2005Q4

REPORT INFORMATION
  Report Type: 
  Country: None (occurrence: None)
  Receive Date: 20051006
  Receipt Date: 20051006
  Transmission Date: 20060501
  Serious: Yes (Life-Threatening, Other)
  Sender: FDA-Public Use
  Company Number: None

PATIENT
  Sex: Male
  Weight: 102.0593 kg

DRUGS (2)
  1. XANAX [Suspect]
     Indication: ANXIETY
     Dosage: 0.25 MG 1-3 TIMES DAILY ORAL
     Route: 048
     Dates: start: 20031001, end: 20040209
  2. XANAX [Suspect]
     Indication: DEPRESSION
     Dosage: 0.25 MG 1-3 TIMES DAILY ORAL
     Route: 048
     Dates: start: 20031001, end: 20040209

REACTIONS (2)
  - ABNORMAL BEHAVIOUR [None]
  - SUICIDAL IDEATION [None]
